FAERS Safety Report 7764616-7 (Version None)
Quarter: 2011Q3

REPORT INFORMATION
  Report Type: 
  Country: None (occurrence: None)
  Receive Date: 20110921
  Receipt Date: 20110912
  Transmission Date: 20111222
  Serious: Yes (Other)
  Sender: FDA-Public Use
  Company Number: PHHY2011BR81924

PATIENT
  Age: 72 Year
  Sex: Male

DRUGS (10)
  1. PIOGLITAZONE [Concomitant]
     Dosage: UNK UKN, UNK
  2. METFORMIN HCL [Concomitant]
     Dosage: UNK UKN, UNK
     Dates: start: 19991101, end: 20011101
  3. AGLUCOSE [Concomitant]
     Dosage: UNK UKN, UNK
  4. GLIMEPIRIDE [Concomitant]
     Dosage: 2 MG, QD
  5. PIRETANIDE [Concomitant]
     Dosage: 1 DF, QD
  6. GALVUS [Suspect]
     Indication: DIABETES MELLITUS
     Dosage: 100 MG, QD
  7. CIPROFIBRATE [Concomitant]
     Dosage: 1 DF, QD
  8. ASPIRIN [Concomitant]
     Dosage: UNK UKN, UNK
  9. DIOVAN HCT [Suspect]
     Indication: HYPERTENSION
     Dosage: 1 DF(160/25 MG) QD
  10. ATORVASTATIN [Suspect]
     Indication: HYPERCHOLESTEROLAEMIA
     Dosage: UNK UKN, UNK

REACTIONS (2)
  - BLOOD PRESSURE INCREASED [None]
  - MICROALBUMINURIA [None]
